FAERS Safety Report 17794923 (Version 1)
Quarter: 2020Q2

REPORT INFORMATION
  Report Type: Spontaneous
  Country: GR (occurrence: GR)
  Receive Date: 20200516
  Receipt Date: 20200516
  Transmission Date: 20200714
  Serious: Yes (Death, Hospitalization)
  Sender: FDA-Public Use
  Company Number: GR-SUN PHARMACEUTICAL INDUSTRIES LTD-2020R1-246541

PATIENT
  Age: 20 Year
  Sex: Male

DRUGS (4)
  1. GEMCITABINE. [Suspect]
     Active Substance: GEMCITABINE
     Indication: OSTEOSARCOMA
     Dosage: UNK
     Route: 065
  2. DOCETAXEL. [Suspect]
     Active Substance: DOCETAXEL
     Indication: OSTEOSARCOMA
     Dosage: UNK
     Route: 065
  3. TOPOTECAN [Suspect]
     Active Substance: TOPOTECAN HYDROCHLORIDE
     Indication: OSTEOSARCOMA
     Dosage: UNK
     Route: 065
  4. CYCLOPHOSPHAMIDE. [Suspect]
     Active Substance: CYCLOPHOSPHAMIDE
     Indication: OSTEOSARCOMA
     Dosage: UNK
     Route: 065

REACTIONS (3)
  - Respiratory failure [Fatal]
  - Metastases to kidney [Unknown]
  - Metastases to central nervous system [Unknown]
